FAERS Safety Report 25190144 (Version 1)
Quarter: 2025Q2

REPORT INFORMATION
  Report Type: Spontaneous
  Country: FI (occurrence: FI)
  Receive Date: 20250411
  Receipt Date: 20250411
  Transmission Date: 20250716
  Serious: Yes (Death)
  Sender: FRESENIUS KABI
  Company Number: None

PATIENT
  Age: 59 Year
  Sex: Female

DRUGS (7)
  1. SODIUM CHLORIDE [Suspect]
     Active Substance: SODIUM CHLORIDE
     Indication: Product used for unknown indication
     Route: 042
     Dates: start: 20170309, end: 20250219
  2. RITUXIMAB [Suspect]
     Active Substance: RITUXIMAB
     Indication: Stiff person syndrome
     Route: 042
     Dates: start: 20170309, end: 20250219
  3. Donepezil Krka [Concomitant]
     Indication: Memory impairment
     Dosage: 5 MG 1X1?FORM OF ADMIN.: FILM-COATED TABLET
     Route: 048
     Dates: start: 2025
  4. ASPIRIN [Concomitant]
     Active Substance: ASPIRIN
     Indication: Cerebral infarction
     Dosage: 100 MG 1X1?FORM OF ADMIN.: GASTRO-RESISTANT TABLET
     Route: 048
     Dates: start: 2019
  5. CLONAZEPAM [Concomitant]
     Active Substance: CLONAZEPAM
     Indication: Stiff person syndrome
     Dosage: 1 MG 1X2?FORM OF ADMIN.: TABLET
     Route: 048
     Dates: start: 2016
  6. SERTRALINE HYDROCHLORIDE [Concomitant]
     Active Substance: SERTRALINE HYDROCHLORIDE
     Indication: Depression
     Dosage: 150 MG 1X1?FORM OF ADMIN.: FILM-COATED TABLET
     Route: 048
     Dates: start: 202108
  7. VENLAFAXINE HYDROCHLORIDE [Concomitant]
     Active Substance: VENLAFAXINE HYDROCHLORIDE
     Indication: Depression
     Dosage: 75 MG 1X1?FORM OF ADMIN.: PROLONGED-RELEASE CAPSULE, HARD
     Route: 048
     Dates: start: 202410

REACTIONS (1)
  - Organising pneumonia [Fatal]

NARRATIVE: CASE EVENT DATE: 20250219
